FAERS Safety Report 10238150 (Version 3)
Quarter: 2014Q3

REPORT INFORMATION
  Report Type: Spontaneous
  Country: JP (occurrence: JP)
  Receive Date: 20140616
  Receipt Date: 20140825
  Transmission Date: 20150326
  Serious: Yes (Other)
  Sender: FDA-Public Use
  Company Number: PHHY2014JP073377

PATIENT
  Age: 68 Year
  Sex: Male
  Weight: 61 kg

DRUGS (7)
  1. GARENOXACIN MESILATE [Concomitant]
     Active Substance: GARENOXACIN MESYLATE
     Indication: CELLULITIS
  2. CARBOPLATIN. [Concomitant]
     Active Substance: CARBOPLATIN
     Indication: NON-SMALL CELL LUNG CANCER
     Dosage: UNK UKN, UNK
     Dates: start: 20130802, end: 20140507
  3. DOCETAXEL [Concomitant]
     Active Substance: DOCETAXEL
     Indication: NON-SMALL CELL LUNG CANCER
     Dosage: 100 MG, UNK
     Route: 042
     Dates: start: 20130803
  4. DOCETAXEL [Concomitant]
     Active Substance: DOCETAXEL
     Dosage: 80 MG, UNK
     Route: 042
     Dates: end: 20140507
  5. ZOMETA [Suspect]
     Active Substance: ZOLEDRONIC ACID
     Indication: METASTASES TO BONE
     Dosage: 4 MG, PER ADMINISTRATION
     Route: 041
     Dates: start: 20130719, end: 20140416
  6. GARENOXACIN MESILATE [Concomitant]
     Active Substance: GARENOXACIN MESYLATE
     Indication: DENTAL CARIES
     Dosage: UNK UKN, UNK
  7. TS-1 [Concomitant]
     Active Substance: GIMERACIL\OTERACIL POTASSIUM\TEGAFUR
     Indication: NON-SMALL CELL LUNG CANCER
     Dosage: UNK UKN, UNK
     Route: 048
     Dates: start: 20130803, end: 20140507

REACTIONS (9)
  - Bone pain [Unknown]
  - Dental necrosis [Unknown]
  - Gingivitis [Unknown]
  - Osteonecrosis of jaw [Not Recovered/Not Resolved]
  - Pain [Unknown]
  - Exposed bone in jaw [Unknown]
  - Skin swelling [Unknown]
  - Erythema [Unknown]
  - Pain of skin [Unknown]

NARRATIVE: CASE EVENT DATE: 201405
